FAERS Safety Report 5354609-1 (Version None)
Quarter: 2007Q2

REPORT INFORMATION
  Report Type: 
  Country: None (occurrence: None)
  Receive Date: 20070608
  Receipt Date: 20070529
  Transmission Date: 20071010
  Serious: Yes (Other)
  Sender: FDA-Public Use
  Company Number: 060016K07USA

PATIENT
  Age: 40 Year
  Sex: Female

DRUGS (1)
  1. SEROPHENE [Suspect]
     Indication: ANOVULATORY CYCLE
     Dosage: 50 MG,

REACTIONS (3)
  - ABORTION SPONTANEOUS [None]
  - DRUG EXPOSURE DURING PREGNANCY [None]
  - ECTOPIC PREGNANCY [None]
